FAERS Safety Report 15594843 (Version 1)
Quarter: 2018Q4

REPORT INFORMATION
  Report Type: Spontaneous
  Country: US (occurrence: US)
  Receive Date: 20181106
  Receipt Date: 20181106
  Transmission Date: 20190205
  Serious: No
  Sender: FDA-Public Use
  Company Number: US-SA-2018SA301929

PATIENT
  Age: 57 Year
  Sex: Female

DRUGS (2)
  1. ASPERCREME PAIN RELIEVING [Suspect]
     Active Substance: TROLAMINE SALICYLATE
  2. LIDOCAINE. [Concomitant]
     Active Substance: LIDOCAINE
     Indication: LIMB INJURY

REACTIONS (1)
  - Application site pruritus [Unknown]
